FAERS Safety Report 5015406-X (Version None)
Quarter: 2006Q2

REPORT INFORMATION
  Report Type: 
  Country: None (occurrence: None)
  Receive Date: 20060601
  Receipt Date: 20060424
  Transmission Date: 20061013
  Serious: Yes (Other)
  Sender: FDA-Public Use
  Company Number: PHFR2006GB01540

PATIENT
  Age: 71 Year
  Sex: Female
  Weight: 64 kg

DRUGS (8)
  1. VALSARTAN [Suspect]
     Indication: MYOCARDIAL ISCHAEMIA
     Dosage: 40MG/DAY
     Route: 048
     Dates: start: 20050501
  2. VALSARTAN [Suspect]
     Dosage: 80MG/DAY
     Route: 048
     Dates: start: 20060301
  3. NICORANDIL [Concomitant]
     Indication: ANGINA PECTORIS
     Dosage: 20MG/DAY
     Route: 048
  4. BISOPROLOL [Concomitant]
     Indication: ANGINA PECTORIS
     Dosage: 5MG/DAY
     Route: 048
  5. ISOSORBIDE MONONITRATE [Concomitant]
     Indication: ANGINA PECTORIS
     Dosage: 40MG/DAY
     Route: 048
  6. FRUSEMIDE [Concomitant]
     Indication: LEFT VENTRICULAR FAILURE
     Dosage: 40MG/DAY
     Route: 048
  7. CLOPIDOGREL [Concomitant]
     Indication: MYOCARDIAL ISCHAEMIA
     Dosage: 75 MG/DAY
     Route: 048
  8. ATORVASTATIN CALCIUM [Concomitant]
     Indication: BLOOD CHOLESTEROL INCREASED
     Dosage: 20 MG/DAY
     Route: 048

REACTIONS (2)
  - HYPOTENSION [None]
  - MYOCARDIAL INFARCTION [None]
